FAERS Safety Report 6520988-2 (Version None)
Quarter: 2009Q4

REPORT INFORMATION
  Report Type: 
  Country: None (occurrence: None)
  Receive Date: 20091229
  Receipt Date: 20091218
  Transmission Date: 20100525
  Serious: Yes (Death, Other)
  Sender: FDA-Public Use
  Company Number: IT-PFIZER INC-2009314299

PATIENT

DRUGS (5)
  1. NELFINAVIR MESYLATE [Suspect]
     Indication: ANTIRETROVIRAL THERAPY
     Dosage: 1750, UNK
     Dates: start: 20051204, end: 20070608
  2. ZIDOVUDINE [Suspect]
     Indication: ANTIRETROVIRAL THERAPY
     Dosage: 600 UNK, UNK
     Dates: start: 20051204
  3. LAMIVUDINE [Suspect]
     Indication: ANTIRETROVIRAL THERAPY
     Dosage: 300 UNK, UNK
     Dates: start: 20051204
  4. LOPINAVIR [Suspect]
     Indication: ANTIRETROVIRAL THERAPY
     Dosage: 800 UNK, UNK
     Dates: start: 20070608
  5. RITONAVIR [Suspect]
     Indication: ANTIRETROVIRAL THERAPY
     Dosage: 200 UNK, UNK
     Dates: start: 20070608

REACTIONS (3)
  - DRUG EXPOSURE DURING PREGNANCY [None]
  - INTRA-UTERINE DEATH [None]
  - PREGNANCY [None]
